FAERS Safety Report 4600439-5 (Version None)
Quarter: 2005Q1

REPORT INFORMATION
  Report Type: 
  Country: None (occurrence: None)
  Receive Date: 20050304
  Receipt Date: 20050215
  Transmission Date: 20050727
  Serious: Yes (Hospitalization)
  Sender: FDA-Public Use
  Company Number: SUS1-2003-00327

PATIENT
  Age: 43 Year
  Sex: Female

DRUGS (1)
  1. PENTASA [Suspect]
     Indication: COLITIS ULCERATIVE
     Dosage: ORAL
     Route: 048
     Dates: start: 20030915, end: 20030915

REACTIONS (4)
  - CONDITION AGGRAVATED [None]
  - CROSS SENSITIVITY REACTION [None]
  - HYPERSENSITIVITY [None]
  - SKIN TEST POSITIVE [None]
